FAERS Safety Report 13793251 (Version 1)
Quarter: 2017Q3

REPORT INFORMATION
  Report Type: Spontaneous
  Country: US (occurrence: US)
  Receive Date: 20170726
  Receipt Date: 20170726
  Transmission Date: 20171127
  Serious: Yes (Other)
  Sender: FDA-Public Use
  Company Number: None

PATIENT
  Sex: Female

DRUGS (1)
  1. BIRTH CONTROL [Suspect]
     Active Substance: UNSPECIFIED INGREDIENT
     Dates: start: 20131206, end: 20170725

REACTIONS (6)
  - Self esteem decreased [None]
  - Mood swings [None]
  - Muscle spasms [None]
  - Menstruation irregular [None]
  - Weight increased [None]
  - Abdominal distension [None]
